FAERS Safety Report 6382848-X (Version None)
Quarter: 2009Q3

REPORT INFORMATION
  Report Type: 
  Country: None (occurrence: None)
  Receive Date: 20090930
  Receipt Date: 20090924
  Transmission Date: 20100115
  Serious: Yes (Life-Threatening, Hospitalization)
  Sender: FDA-Public Use
  Company Number: FR-WYE-G04500109

PATIENT
  Sex: Female

DRUGS (6)
  1. RAPAMUNE [Suspect]
     Route: 048
     Dates: start: 20090527, end: 20090609
  2. RAPAMUNE [Suspect]
     Route: 048
     Dates: start: 20090610, end: 20090623
  3. RAPAMUNE [Suspect]
     Route: 048
     Dates: start: 20090624, end: 20090825
  4. MYFORTIC [Concomitant]
     Dosage: UNKNOWN
     Dates: end: 20090812
  5. NEORAL [Concomitant]
     Dosage: UNKNOWN
     Dates: end: 20090811
  6. NEORAL [Concomitant]
     Dosage: UNKNOWN
     Dates: start: 20090812

REACTIONS (8)
  - CONDITION AGGRAVATED [None]
  - CYTOMEGALOVIRUS INFECTION [None]
  - DIABETES MELLITUS [None]
  - INTERSTITIAL LUNG DISEASE [None]
  - LEUKOPENIA [None]
  - LYMPHADENOPATHY MEDIASTINAL [None]
  - PULMONARY ALVEOLAR HAEMORRHAGE [None]
  - RENAL FAILURE [None]
